FAERS Safety Report 23931790 (Version 1)
Quarter: 2024Q2

REPORT INFORMATION
  Report Type: Spontaneous
  Country: GB (occurrence: GB)
  Receive Date: 20240603
  Receipt Date: 20240603
  Transmission Date: 20240716
  Serious: Yes (Other)
  Sender: FDA-Public Use
  Company Number: None

PATIENT
  Age: 55 Year
  Sex: Female
  Weight: 94 kg

DRUGS (12)
  1. AMOXICILLIN\CLAVULANIC ACID [Suspect]
     Active Substance: AMOXICILLIN\CLAVULANIC ACID
     Indication: Product used for unknown indication
     Dosage: 500MG/125MG
  2. ESTRADIOL [Concomitant]
     Active Substance: ESTRADIOL
     Indication: Product used for unknown indication
     Dosage: APPLY ONE TWICE WEEKLY, NEEDS BP FOR FURTHER ISSUE
     Dates: start: 20230626
  3. AMITRIPTYLINE HYDROCHLORIDE [Concomitant]
     Active Substance: AMITRIPTYLINE HYDROCHLORIDE
     Indication: Product used for unknown indication
     Dosage: 1-2 AT NIGHT
     Dates: start: 20240123
  4. CANDESARTAN [Concomitant]
     Active Substance: CANDESARTAN
     Indication: Product used for unknown indication
     Dosage: TAKE ONE TABLET ONCE A DAY
     Dates: start: 20240123
  5. CEPHALEXIN [Concomitant]
     Active Substance: CEPHALEXIN
     Indication: Infection prophylaxis
     Dosage: TAKE ONE AS NEEDED TO PREVENT CYSTITIS WHEN EXP...
     Dates: start: 20221130
  6. FEXOFENADINE [Concomitant]
     Active Substance: FEXOFENADINE HYDROCHLORIDE
     Indication: Product used for unknown indication
     Dosage: TAKE ONE AS REQUIRED FOR ALLERGY UP TO FOUR TIM...
     Dates: start: 20240423
  7. FOLIC ACID [Concomitant]
     Active Substance: FOLIC ACID
     Indication: Product used for unknown indication
     Dosage: TAKE ONE DAILY EXCEPT DAY OF METHOTREXATE (THUR...
     Dates: start: 20230222
  8. LEVOTHYROXINE [Concomitant]
     Active Substance: LEVOTHYROXINE\LEVOTHYROXINE SODIUM
     Indication: Product used for unknown indication
     Dosage: TAKE ONE TABLET EACH MORNING ALTERNATE DAYS BEF...
     Dates: start: 20240108
  9. METHOTREXATE [Concomitant]
     Active Substance: METHOTREXATE
     Indication: Product used for unknown indication
     Dosage: 20MG (EIGHT TABLETS) TO BE TAKEN WEEKLY ON A TH...
     Dates: start: 20240126
  10. METOCLOPRAMIDE [Concomitant]
     Active Substance: METOCLOPRAMIDE
     Indication: Migraine
     Dosage: ONE TO BE TAKEN THREE TIMES A DAY- FOR MIGRAINE...
     Dates: start: 20221007
  11. MICONAZOLE [Concomitant]
     Active Substance: MICONAZOLE
     Indication: Infection
     Dosage: FOR MOUTH INFECTION
     Dates: start: 20240506
  12. OXCARBAZEPINE [Concomitant]
     Active Substance: OXCARBAZEPINE
     Indication: Product used for unknown indication
     Dosage: 1 DAILY
     Dates: start: 20240123

REACTIONS (6)
  - Illness [Unknown]
  - Dysphagia [Unknown]
  - Rash [Recovered/Resolved]
  - Swollen tongue [Recovered/Resolved]
  - Vomiting [Unknown]
  - Diarrhoea [Unknown]
